FAERS Safety Report 7401978-4 (Version None)
Quarter: 2011Q2

REPORT INFORMATION
  Report Type: 
  Country: None (occurrence: None)
  Receive Date: 20110408
  Receipt Date: 20110404
  Transmission Date: 20111010
  Serious: Yes (Other)
  Sender: FDA-Public Use
  Company Number: FR-PFIZER INC-2011073585

PATIENT
  Age: 84 Year
  Sex: Female

DRUGS (10)
  1. IRBESARTAN [Concomitant]
     Dosage: 150 MG, 1X/DAY
     Route: 048
  2. EQUANIL [Concomitant]
     Dosage: 400 MG, 1X/DAY
     Route: 048
  3. TRIFLUCAN [Suspect]
     Indication: FUNGAL INFECTION
     Dosage: 50 MG, 1X/DAY
     Route: 048
     Dates: start: 20100806, end: 20100809
  4. COUMADIN [Concomitant]
     Indication: ARRHYTHMIA
     Dosage: 2 MG, 1X/DAY
     Route: 048
     Dates: end: 20100811
  5. CEFTRIAXONE PANPHARMA [Suspect]
     Indication: URINARY TRACT INFECTION
     Dosage: 1 G, 2X/DAY
     Route: 042
     Dates: start: 20100804
  6. DISCOTRINE [Concomitant]
     Dosage: 10 MG, 1X/DAY
     Route: 062
  7. CEFIXIME ARROW [Suspect]
     Indication: URINARY TRACT INFECTION
     Dosage: 200 MG, 2X/DAY
     Route: 048
     Dates: start: 20100728, end: 20100803
  8. ECONAZOLE SANDOZ [Concomitant]
     Indication: FUNGAL INFECTION
     Dosage: 1 DF, 1X/DAY
     Route: 061
     Dates: start: 20100806, end: 20100809
  9. CORDARONE [Concomitant]
     Dosage: 200 MG, 1X/DAY
     Route: 048
  10. LASIX [Concomitant]
     Dosage: 20 MG, 1X/DAY
     Route: 048

REACTIONS (1)
  - CLOSTRIDIUM DIFFICILE COLITIS [None]
